FAERS Safety Report 22594155 (Version 1)
Quarter: 2023Q2

REPORT INFORMATION
  Report Type: Spontaneous
  Country: US (occurrence: None)
  Receive Date: 20230612
  Receipt Date: 20230612
  Transmission Date: 20230722
  Serious: No
  Sender: FDA-Public Use
  Company Number: None

PATIENT
  Age: 55 Year
  Sex: Female
  Weight: 76.5 kg

DRUGS (3)
  1. LEVETIRACETAM [Suspect]
     Active Substance: LEVETIRACETAM
     Indication: Seizure
     Dosage: FREQUENCY : EVERY 12 HOURS;?
     Dates: start: 20130101
  2. BUPROPION [Concomitant]
     Active Substance: BUPROPION
  3. VITAMIN D NOS [Suspect]
     Active Substance: VITAMIN D NOS

REACTIONS (1)
  - Amnesia [None]

NARRATIVE: CASE EVENT DATE: 20150101
